FAERS Safety Report 11549596 (Version 1)
Quarter: 2015Q3

REPORT INFORMATION
  Report Type: Spontaneous
  Country: US (occurrence: US)
  Receive Date: 20150924
  Receipt Date: 20150924
  Transmission Date: 20151125
  Serious: No
  Sender: FDA-Public Use
  Company Number: US-INCYTE CORPORATION-2015IN003594

PATIENT
  Sex: Male

DRUGS (9)
  1. JAKAFI [Suspect]
     Active Substance: RUXOLITINIB
     Indication: MYELOFIBROSIS
     Dosage: 5 MG, BID
     Route: 048
     Dates: start: 201402
  2. ALLOPURINOL. [Concomitant]
     Active Substance: ALLOPURINOL
  3. AUGMENTIN [Concomitant]
     Active Substance: AMOXICILLIN\CLAVULANATE POTASSIUM
  4. FUROSEMIDE. [Concomitant]
     Active Substance: FUROSEMIDE
  5. CRESTOR [Concomitant]
     Active Substance: ROSUVASTATIN CALCIUM
  6. FINASTERIDE. [Concomitant]
     Active Substance: FINASTERIDE
  7. POTASSIUM [Concomitant]
     Active Substance: POTASSIUM
  8. METOPROLOL [Concomitant]
     Active Substance: METOPROLOL
  9. TAMSULOSIN [Concomitant]
     Active Substance: TAMSULOSIN

REACTIONS (1)
  - Blood disorder [Unknown]
